FAERS Safety Report 6988946-1 (Version None)
Quarter: 2010Q3

REPORT INFORMATION
  Report Type: 
  Country: None (occurrence: None)
  Receive Date: 20100916
  Receipt Date: 20090818
  Transmission Date: 20110219
  Serious: Yes (Other)
  Sender: FDA-Public Use
  Company Number: US-PFIZER INC-2009221607

PATIENT
  Sex: Female
  Weight: 108.84 kg

DRUGS (13)
  1. LYRICA [Suspect]
     Indication: FIBROMYALGIA
     Dosage: 75 MG, 2X/DAY
     Dates: start: 20060719
  2. LYRICA [Suspect]
     Dosage: 150 MG, 2X/DAY
  3. LASIX [Concomitant]
     Indication: HYPERTENSION
     Dosage: UNK
  4. CLONIDINE [Concomitant]
     Dosage: 0.2 MG, 2X/DAY
  5. NORVASC [Concomitant]
     Dosage: 10 MG, 1X/DAY
  6. ATENOLOL [Concomitant]
     Dosage: 25 MG, 1X/DAY
  7. LISINOPRIL [Concomitant]
     Dosage: 20 MG, 1X/DAY
  8. CYMBALTA [Concomitant]
     Indication: FIBROMYALGIA
     Dosage: UNK
  9. XANAX [Concomitant]
     Indication: ANXIETY
     Dosage: UNK
  10. XANAX [Concomitant]
     Indication: PANIC ATTACK
  11. REMERON [Concomitant]
     Indication: INSOMNIA
     Dosage: 15 MG, 1X/DAY AT NIGHT
  12. LORTAB [Concomitant]
  13. SPIRONOLACTONE [Concomitant]
     Indication: HYPERTENSION
     Dosage: UNK

REACTIONS (2)
  - SWELLING [None]
  - WEIGHT INCREASED [None]
